FAERS Safety Report 8111596-0 (Version None)
Quarter: 2012Q1

REPORT INFORMATION
  Report Type: 
  Country: None (occurrence: None)
  Receive Date: 20120203
  Receipt Date: 20120120
  Transmission Date: 20120608
  Serious: Yes (Other)
  Sender: FDA-Public Use
  Company Number: US-RANBAXY-2012US-52123

PATIENT
  Age: 62 Year
  Sex: Male

DRUGS (5)
  1. ATORVASTATIN [Suspect]
     Indication: CORONARY ARTERY BYPASS
     Dosage: 20 MG/DAY
     Route: 065
  2. ASPIRIN [Concomitant]
     Indication: PRODUCT USED FOR UNKNOWN INDICATION
     Route: 065
  3. SIMVASTATIN [Suspect]
     Indication: CORONARY ARTERY BYPASS
     Route: 065
  4. RAMIPRIL [Concomitant]
     Indication: PRODUCT USED FOR UNKNOWN INDICATION
     Route: 065
  5. PERINDOPRIL ERBUMINE [Concomitant]
     Indication: PRODUCT USED FOR UNKNOWN INDICATION
     Route: 065

REACTIONS (4)
  - MYALGIA [None]
  - ARTHRALGIA [None]
  - MYOPATHY [None]
  - ABNORMAL BEHAVIOUR [None]
